FAERS Safety Report 18323372 (Version 2)
Quarter: 2020Q4

REPORT INFORMATION
  Report Type: Spontaneous
  Country: US (occurrence: US)
  Receive Date: 20200928
  Receipt Date: 20201005
  Transmission Date: 20210113
  Serious: No
  Sender: FDA-Public Use
  Company Number: US-JNJFOC-20200940367

PATIENT
  Age: 74 Year
  Sex: Male

DRUGS (1)
  1. SIMPONI [Suspect]
     Active Substance: GOLIMUMAB
     Indication: COLITIS ULCERATIVE
     Route: 058
     Dates: start: 20200520, end: 20200915

REACTIONS (1)
  - Drug ineffective [Unknown]

NARRATIVE: CASE EVENT DATE: 20200922
